FAERS Safety Report 11272221 (Version 1)
Quarter: 2015Q2

REPORT INFORMATION
  Report Type: Spontaneous
  Country: US (occurrence: None)
  Receive Date: 20150625
  Receipt Date: 20150625
  Transmission Date: 20150821
  Serious: No
  Sender: FDA-Public Use
  Company Number: A-US2014-106974

PATIENT
  Age: 67 Year
  Sex: Female

DRUGS (11)
  1. OPSUMIT [Suspect]
     Active Substance: MACITENTAN
     Indication: PULMONARY ARTERIAL HYPERTENSION
     Route: 048
     Dates: start: 20140925, end: 20141211
  2. LUNESTA [Concomitant]
     Active Substance: ESZOPICLONE
  3. ADVIR (FLUTICASONE PROPIONATE, SALMETEROL XINAFOATE) [Concomitant]
  4. SPIRIVA [Concomitant]
     Active Substance: TIOTROPIUM BROMIDE MONOHYDRATE
  5. ACETYLCYSTEINE (ACETYLCYSTEINE SODIUM) [Concomitant]
  6. ASPIRIN (ACETYLSALICYLIC ACID) [Concomitant]
     Active Substance: ASPIRIN
  7. REVATIO (SILDENAFIL CITRATE) [Concomitant]
  8. PROAIR (FLUTICASONE PROPIONATE) [Concomitant]
     Active Substance: FLUTICASONE PROPIONATE
  9. METOPROLOL SUCCINATE (METOPROLOL SUCCINATE0 [Concomitant]
  10. DIOVAN [Concomitant]
     Active Substance: VALSARTAN
  11. NORVASC [Concomitant]
     Active Substance: AMLODIPINE BESYLATE

REACTIONS (6)
  - Pyrexia [None]
  - Abdominal discomfort [None]
  - Dyspepsia [None]
  - Peripheral swelling [None]
  - Chest pain [None]
  - Dyspnoea [None]

NARRATIVE: CASE EVENT DATE: 20141001
